FAERS Safety Report 20140243 (Version 2)
Quarter: 2022Q1

REPORT INFORMATION
  Report Type: Report from Study
  Country: US (occurrence: US)
  Receive Date: 20211202
  Receipt Date: 20220304
  Transmission Date: 20220423
  Serious: Yes (Other)
  Sender: FDA-Public Use
  Company Number: US-TAKEDA-2021TUS075172

PATIENT
  Age: 51 Year
  Sex: Male
  Weight: 115.68 kg

DRUGS (2)
  1. BRIGATINIB [Suspect]
     Active Substance: BRIGATINIB
     Indication: Lung neoplasm malignant
     Dosage: 90 MILLIGRAM, QD
     Route: 048
     Dates: start: 20211027
  2. BRIGATINIB [Suspect]
     Active Substance: BRIGATINIB
     Dosage: 60 MILLIGRAM, QD
     Route: 048

REACTIONS (6)
  - Knee operation [Unknown]
  - Heart rate irregular [Unknown]
  - Headache [Unknown]
  - Blood creatine phosphokinase [Unknown]
  - Palpitations [Unknown]
  - Joint swelling [Unknown]

NARRATIVE: CASE EVENT DATE: 20211117
